FAERS Safety Report 15118708 (Version 1)
Quarter: 2018Q3

REPORT INFORMATION
  Report Type: Spontaneous
  Country: IT (occurrence: IT)
  Receive Date: 20180709
  Receipt Date: 20180709
  Transmission Date: 20181010
  Serious: Yes (Other)
  Sender: FDA-Public Use
  Company Number: IT-VIVIMED-2018SP005487

PATIENT

DRUGS (1)
  1. LOSARTAN. [Suspect]
     Active Substance: LOSARTAN
     Indication: ALBUMINURIA
     Dosage: 100 MG PER DAY
     Route: 065

REACTIONS (1)
  - Drug ineffective [Unknown]
